FAERS Safety Report 22131454 (Version 1)
Quarter: 2023Q1

REPORT INFORMATION
  Report Type: Spontaneous
  Country: US (occurrence: US)
  Receive Date: 20230323
  Receipt Date: 20230323
  Transmission Date: 20230418
  Serious: No
  Sender: FDA-Public Use
  Company Number: TU22-1260798

PATIENT
  Age: 71 Year
  Sex: Female
  Weight: 58.967 kg

DRUGS (1)
  1. LASTACAFT [Suspect]
     Active Substance: ALCAFTADINE
     Indication: Hypersensitivity
     Dosage: 1 DF, QD
     Route: 047
     Dates: start: 202206

REACTIONS (4)
  - Feeling abnormal [Not Recovered/Not Resolved]
  - Therapeutic product effect variable [Unknown]
  - Ocular hyperaemia [Not Recovered/Not Resolved]
  - Eye discharge [Not Recovered/Not Resolved]

NARRATIVE: CASE EVENT DATE: 20221005
